FAERS Safety Report 18335410 (Version 2)
Quarter: 2020Q4

REPORT INFORMATION
  Report Type: Spontaneous
  Country: IR (occurrence: IR)
  Receive Date: 20201001
  Receipt Date: 20201015
  Transmission Date: 20210113
  Serious: Yes (Other)
  Sender: FDA-Public Use
  Company Number: IR-LUPIN PHARMACEUTICALS INC.-2020-06427

PATIENT
  Age: 30 Year
  Sex: Female

DRUGS (15)
  1. OLANZAPINE. [Suspect]
     Active Substance: OLANZAPINE
     Indication: NEUROLOGICAL SYMPTOM
     Dosage: 2.5 MILLIGRAM, UNK (TABLET)
     Route: 048
     Dates: start: 2018
  2. MAGNESIUM SULPHATE [MAGNESIUM SULFATE] [Suspect]
     Active Substance: MAGNESIUM SULFATE
     Dosage: 2 GRAM EVERY HOUR (MAINTENANCE DOSE; DISCONTINUED AFTER 48 HOURS)
     Route: 042
     Dates: start: 2018
  3. ACETAMINOPHEN. [Suspect]
     Active Substance: ACETAMINOPHEN
     Indication: PYREXIA
     Dosage: 1 GRAM, UNK
     Route: 042
     Dates: start: 2018
  4. DIAZEPAM. [Suspect]
     Active Substance: DIAZEPAM
     Indication: GENERALISED TONIC-CLONIC SEIZURE
     Dosage: UNK (1 DOSE WAS ADMINISTERED IN TOTAL)
     Route: 042
     Dates: start: 2018
  5. BIPERIDEN [Suspect]
     Active Substance: BIPERIDEN
     Indication: NEUROLOGICAL SYMPTOM
     Dosage: 5 MILLIGRAM IN TOTAL
     Route: 030
     Dates: start: 2018
  6. FERROUS SULPHATE [FERROUS SULFATE] [Suspect]
     Active Substance: FERROUS SULFATE
     Indication: ANAEMIA
     Dosage: UNK, TID
     Route: 048
     Dates: start: 2018
  7. LEVETIRACETAM. [Suspect]
     Active Substance: LEVETIRACETAM
     Indication: SEIZURE PROPHYLAXIS
     Dosage: UNK
     Route: 065
     Dates: start: 2018
  8. POTASSIUM CHLORIDE. [Suspect]
     Active Substance: POTASSIUM CHLORIDE
     Indication: HYPOKALAEMIA
     Dosage: UNK
     Route: 065
     Dates: start: 2018
  9. FOLIC ACID. [Suspect]
     Active Substance: FOLIC ACID
     Indication: ANAEMIA
     Dosage: UNK, QD
     Route: 048
     Dates: start: 2018
  10. PHENYTOIN SODIUM. [Suspect]
     Active Substance: PHENYTOIN SODIUM
     Indication: SEIZURE PROPHYLAXIS
     Dosage: UNK
     Route: 065
     Dates: start: 2018
  11. MAGNESIUM SULPHATE [MAGNESIUM SULFATE] [Suspect]
     Active Substance: MAGNESIUM SULFATE
     Indication: DRUG WITHDRAWAL SYNDROME
     Dosage: 4 GRAM IN TOTAL (INITIAL DOSE OF 4 GRAMS FOLLOWED BY 2 GRAMS PER HOUR)
     Route: 042
     Dates: start: 2018
  12. HALOPERIDOL. [Suspect]
     Active Substance: HALOPERIDOL
     Indication: NEUROLOGICAL SYMPTOM
     Dosage: 5 MILLIGRAM IN TOTAL
     Route: 030
     Dates: start: 2018
  13. ACYCLOVIR [ACICLOVIR] [Suspect]
     Active Substance: ACYCLOVIR
     Indication: HERPES SIMPLEX ENCEPHALITIS
     Dosage: 10 MILLIGRAM/KILOGRAM, TID (DOSE WAS REDUCED AFTER 7 DAYS AND CONTINUED FOR 14 DAYS AFTER FINAL DIAG
     Route: 042
     Dates: start: 2018
  14. MORPHINE [Suspect]
     Active Substance: MORPHINE
     Indication: DRUG WITHDRAWAL SYNDROME
     Dosage: 5 MILLIGRAM IN TOTAL (1 SHOT OF 5MG; FORMULATION: INJECTION)
     Route: 030
     Dates: start: 2018
  15. CEFTRIAXONE. [Suspect]
     Active Substance: CEFTRIAXONE
     Indication: ANTIBIOTIC THERAPY
     Dosage: 1 GRAM, BID
     Route: 065
     Dates: start: 2018

REACTIONS (3)
  - Renal impairment [Recovered/Resolved]
  - Normal newborn [Unknown]
  - Exposure during pregnancy [Unknown]

NARRATIVE: CASE EVENT DATE: 2018
